FAERS Safety Report 8789548 (Version 1)
Quarter: 2012Q4

REPORT INFORMATION
  Report Type: Spontaneous
  Country: US (occurrence: None)
  Receive Date: 20120905
  Receipt Date: 20120905
  Transmission Date: 20130627
  Serious: Yes (Other)
  Sender: FDA-Public Use
  Company Number: ACO_31711_2012

PATIENT
  Sex: Female

DRUGS (1)
  1. AMPYRA [Suspect]
     Indication: PRODUCT USED FOR UNKNOWN INDICATION
     Dosage: q 12 hrs
     Route: 048
     Dates: start: 20110920

REACTIONS (5)
  - Hallucination, visual [None]
  - Visual impairment [None]
  - Vomiting [None]
  - Nausea [None]
  - Balance disorder [None]
